FAERS Safety Report 9591492 (Version 1)
Quarter: 2013Q4

REPORT INFORMATION
  Report Type: Spontaneous
  Country: US (occurrence: US)
  Receive Date: 20131003
  Receipt Date: 20131003
  Transmission Date: 20140711
  Serious: No
  Sender: FDA-Public Use
  Company Number: US-AMGEN-USASP2012080810

PATIENT
  Age: 41 Year
  Sex: Female
  Weight: 90.7 kg

DRUGS (1)
  1. ENBREL [Suspect]
     Indication: RHEUMATOID ARTHRITIS
     Dosage: 50 MG, TWICE A MONTH
     Route: 058
     Dates: start: 2003, end: 2005

REACTIONS (3)
  - Arthritis [Unknown]
  - Oedema peripheral [Unknown]
  - Drug ineffective [Unknown]
